FAERS Safety Report 7149272-3 (Version None)
Quarter: 2010Q4

REPORT INFORMATION
  Report Type: 
  Country: None (occurrence: None)
  Receive Date: 20101209
  Receipt Date: 20101129
  Transmission Date: 20110411
  Serious: Yes (Death)
  Sender: FDA-Public Use
  Company Number: NL-WATSON-2010-15790

PATIENT
  Age: 59 Year
  Sex: Female

DRUGS (1)
  1. RIVASTIGMINE TARTRATE (WATSON LABORATORIES) [Suspect]
     Indication: DELIRIUM
     Dosage: 0.75 ML, UNK

REACTIONS (2)
  - ACUTE RESPIRATORY DISTRESS SYNDROME [None]
  - RESPIRATORY FAILURE [None]
